FAERS Safety Report 7900903-7 (Version None)
Quarter: 2011Q4

REPORT INFORMATION
  Report Type: 
  Country: None (occurrence: None)
  Receive Date: 20111108
  Receipt Date: 20111025
  Transmission Date: 20120403
  Serious: Yes (Hospitalization)
  Sender: FDA-Public Use
  Company Number: US-ELI_LILLY_AND_COMPANY-US201110008097

PATIENT
  Age: 16 Year
  Sex: Female

DRUGS (5)
  1. STRATTERA [Suspect]
     Dosage: 60 MG, UNK
  2. STRATTERA [Suspect]
     Indication: ATTENTION DEFICIT/HYPERACTIVITY DISORDER
     Dosage: 80 MG, UNK
  3. CELEXA [Concomitant]
  4. HALDOL [Concomitant]
     Indication: TOURETTE'S DISORDER
     Dosage: 1.5 MG, UNK
  5. CLOMIPRAMINE HCL [Concomitant]
     Dosage: 300 MG, UNK

REACTIONS (3)
  - ACTIVATION SYNDROME [None]
  - VERTIGO [None]
  - TIC [None]
